FAERS Safety Report 9006032 (Version 1)
Quarter: 2013Q1

REPORT INFORMATION
  Report Type: Spontaneous
  Country: GB (occurrence: GB)
  Receive Date: 20130109
  Receipt Date: 20130109
  Transmission Date: 20140127
  Serious: Yes (Hospitalization)
  Sender: FDA-Public Use
  Company Number: PHHY2013GB001764

PATIENT
  Age: 73 Year
  Sex: Male
  Weight: 73.2 kg

DRUGS (6)
  1. OXALIPLATIN [Suspect]
     Indication: CHEMOTHERAPY
     Route: 042
     Dates: start: 20081230, end: 20090506
  2. IRINOTECAN [Suspect]
     Indication: COLORECTAL CANCER METASTATIC
  3. 5-FLUOROURACIL [Suspect]
     Indication: COLORECTAL CANCER METASTATIC
  4. FOLINIC ACID [Suspect]
     Indication: COLORECTAL CANCER METASTATIC
  5. CAPECITABINE [Suspect]
     Indication: CHEMOTHERAPY
     Route: 048
     Dates: start: 20081230, end: 20090506
  6. HALOPERIDOL [Concomitant]
     Dosage: 1.5 MG, QD
     Route: 048

REACTIONS (15)
  - Oedema peripheral [Recovered/Resolved]
  - Hypoalbuminaemia [Recovered/Resolved]
  - Urinary retention [Recovered/Resolved]
  - Peripheral sensory neuropathy [Unknown]
  - Neuropathy peripheral [Unknown]
  - Palmar-plantar erythrodysaesthesia syndrome [Unknown]
  - Lethargy [Unknown]
  - Joint swelling [Unknown]
  - Mucosal inflammation [Unknown]
  - Abdominal pain [Unknown]
  - Weight decreased [Unknown]
  - Constipation [Unknown]
  - Diarrhoea [Unknown]
  - Vomiting [Unknown]
  - Nausea [Unknown]
